FAERS Safety Report 20178998 (Version 1)
Quarter: 2021Q4

REPORT INFORMATION
  Report Type: Spontaneous
  Country: IT (occurrence: IT)
  Receive Date: 20211214
  Receipt Date: 20211214
  Transmission Date: 20220303
  Serious: Yes (Disabling)
  Sender: FDA-Public Use
  Company Number: IT-TEVA-2021-IT-1985450

PATIENT
  Age: 16 Year
  Sex: Male
  Weight: 60 kg

DRUGS (6)
  1. ISOTRETINOIN [Suspect]
     Active Substance: ISOTRETINOIN
     Indication: Acne
     Dosage: 30 MILLIGRAM DAILY; ISODIFA 30 MG CAPSULE MOLLI
     Route: 048
     Dates: start: 20190219, end: 20190910
  2. ISOTRETINOIN [Suspect]
     Active Substance: ISOTRETINOIN
     Indication: Acne
     Dosage: 20 MILLIGRAM DAILY;
     Route: 065
     Dates: start: 20181002
  3. ISOTRETINOIN [Suspect]
     Active Substance: ISOTRETINOIN
     Dosage: 30 MILLIGRAM DAILY; 20 + 10 MG
     Route: 065
     Dates: start: 20181218
  4. TRETINOIN [Suspect]
     Active Substance: TRETINOIN
     Indication: Acne
     Route: 061
     Dates: start: 20191001
  5. NAPHTHA [Suspect]
     Active Substance: NAPHTHA
     Indication: Acne
     Route: 061
     Dates: start: 20191001
  6. ISOTRETINOIN [Suspect]
     Active Substance: ISOTRETINOIN
     Indication: Acne
     Dosage: 5 MG/KG DAILY;
     Route: 065
     Dates: start: 20200922, end: 20210413

REACTIONS (3)
  - Epiphyses premature fusion [Not Recovered/Not Resolved]
  - Adult failure to thrive [Recovered/Resolved]
  - Alopecia [Recovered/Resolved]

NARRATIVE: CASE EVENT DATE: 20181120
